FAERS Safety Report 5801244-4 (Version None)
Quarter: 2008Q3

REPORT INFORMATION
  Report Type: 
  Country: None (occurrence: None)
  Receive Date: 20080707
  Receipt Date: 20080625
  Transmission Date: 20090109
  Serious: Yes (Hospitalization)
  Sender: FDA-Public Use
  Company Number: US-JNJFOC-20080606768

PATIENT
  Sex: Female
  Weight: 86.18 kg

DRUGS (9)
  1. DURAGESIC-100 [Suspect]
     Indication: PAIN
     Route: 062
  2. DICLOFENAC SODIUM [Suspect]
     Indication: PAIN IN EXTREMITY
     Route: 048
  3. MOTRIN [Concomitant]
     Indication: INFLAMMATION
     Route: 048
  4. FOLIC ACID [Concomitant]
     Indication: MEDICAL DIET
     Route: 048
  5. CENTRUM SILVER [Concomitant]
     Indication: MEDICAL DIET
     Route: 048
  6. OSCAL [Concomitant]
     Indication: MEDICAL DIET
     Route: 048
  7. STOOL SOFTNER [Concomitant]
     Indication: CONSTIPATION
     Route: 048
  8. LIDODERM [Concomitant]
     Indication: PAIN
     Route: 062
  9. ENABLEX [Concomitant]
     Indication: HYPERTONIC BLADDER
     Route: 048

REACTIONS (16)
  - ANXIETY [None]
  - APPLICATION SITE ERYTHEMA [None]
  - ARTHRALGIA [None]
  - ARTHRITIS [None]
  - BACK PAIN [None]
  - BLOOD CHOLESTEROL INCREASED [None]
  - BLOOD PRESSURE INCREASED [None]
  - DEPRESSION [None]
  - DRUG INEFFECTIVE [None]
  - DRY MOUTH [None]
  - GAIT DISTURBANCE [None]
  - HYPOAESTHESIA [None]
  - MULTIPLE ALLERGIES [None]
  - MUSCLE SPASMS [None]
  - PHARMACEUTICAL PRODUCT COMPLAINT [None]
  - WRONG TECHNIQUE IN DRUG USAGE PROCESS [None]
